FAERS Safety Report 7563484-6 (Version None)
Quarter: 2011Q2

REPORT INFORMATION
  Report Type: 
  Country: None (occurrence: None)
  Receive Date: 20110622
  Receipt Date: 20110620
  Transmission Date: 20111010
  Serious: Yes (Other)
  Sender: FDA-Public Use
  Company Number: BR-PFIZER INC-2011136504

PATIENT
  Age: 34 Year
  Sex: Female
  Weight: 73 kg

DRUGS (1)
  1. ALPRAZOLAM [Suspect]
     Indication: ANXIETY
     Dosage: 0.5 MG, 1X/DAY
     Route: 048
     Dates: start: 20101201

REACTIONS (5)
  - DISORIENTATION [None]
  - SUFFOCATION FEELING [None]
  - CHEST DISCOMFORT [None]
  - TREMOR [None]
  - DISTURBANCE IN ATTENTION [None]
